FAERS Safety Report 4688968-X (Version None)
Quarter: 2005Q2

REPORT INFORMATION
  Report Type: 
  Country: None (occurrence: None)
  Receive Date: 20050613
  Receipt Date: 20050310
  Transmission Date: 20051028
  Serious: Yes (Hospitalization)
  Sender: FDA-Public Use
  Company Number: US-MERCK-0503USA02377

PATIENT
  Age: 49 Year
  Sex: Female
  Weight: 82 kg

DRUGS (6)
  1. VIOXX [Suspect]
     Indication: RHEUMATOID ARTHRITIS
     Route: 048
     Dates: start: 20011005, end: 20041004
  2. VIOXX [Suspect]
     Indication: FIBROMYALGIA
     Route: 048
     Dates: start: 20011005, end: 20041004
  3. ALEVE [Concomitant]
     Indication: MIGRAINE
     Route: 065
     Dates: start: 19981010
  4. PREMARIN [Concomitant]
     Route: 065
     Dates: start: 19960830
  5. EFFEXOR [Concomitant]
     Indication: DEPRESSION
     Route: 065
     Dates: start: 19981030
  6. EFFEXOR [Concomitant]
     Indication: CHRONIC FATIGUE SYNDROME
     Route: 065
     Dates: start: 19981030

REACTIONS (28)
  - ABDOMINAL PAIN [None]
  - ACUTE CORONARY SYNDROME [None]
  - ATRIAL FIBRILLATION [None]
  - BLOOD POTASSIUM INCREASED [None]
  - C-REACTIVE PROTEIN INCREASED [None]
  - CARDIAC VALVE DISEASE [None]
  - CORONARY ARTERY DISEASE [None]
  - DYSURIA [None]
  - EMOTIONAL DISTRESS [None]
  - FEELING HOT AND COLD [None]
  - GASTROOESOPHAGEAL REFLUX DISEASE [None]
  - HAEMATURIA [None]
  - HEADACHE [None]
  - HEART RATE INCREASED [None]
  - HOT FLUSH [None]
  - HYPERTENSION [None]
  - IRRITABLE BOWEL SYNDROME [None]
  - MYOCARDIAL INFARCTION [None]
  - ONYCHOMYCOSIS [None]
  - OVARIAN CYST [None]
  - PANIC DISORDER [None]
  - RENAL ATROPHY [None]
  - RENAL FAILURE [None]
  - RHEUMATIC FEVER [None]
  - TREMOR [None]
  - TUBERCULOSIS [None]
  - URINARY HESITATION [None]
  - URINARY TRACT INFECTION [None]
